FAERS Safety Report 15632373 (Version 1)
Quarter: 2018Q4

REPORT INFORMATION
  Report Type: Spontaneous
  Country: US (occurrence: US)
  Receive Date: 20181114
  Receipt Date: 20181114
  Transmission Date: 20190205
  Serious: No
  Sender: FDA-Public Use
  Company Number: None

PATIENT
  Age: 82 Year
  Sex: Male

DRUGS (1)
  1. ZYTIGA TAB 500MG [Suspect]
     Active Substance: ABIRATERONE ACETATE
     Dates: start: 20181110, end: 20181112

REACTIONS (2)
  - Nasopharyngitis [None]
  - Product dose omission [None]

NARRATIVE: CASE EVENT DATE: 20181112
